FAERS Safety Report 20919294 (Version 2)
Quarter: 2022Q2

REPORT INFORMATION
  Report Type: Spontaneous
  Country: US (occurrence: US)
  Receive Date: 20220606
  Receipt Date: 20220629
  Transmission Date: 20220720
  Serious: Yes (Hospitalization)
  Sender: FDA-Public Use
  Company Number: US-SA-SAC20220602000980

PATIENT
  Age: 53 Year
  Sex: Female

DRUGS (23)
  1. DUPIXENT [Suspect]
     Active Substance: DUPILUMAB
     Indication: Asthma
     Dosage: 300 MG, QOW
     Route: 058
     Dates: start: 20220506
  2. ASPIRIN [Concomitant]
     Active Substance: ASPIRIN
  3. ATORVASTATIN [Concomitant]
     Active Substance: ATORVASTATIN
  4. DICLOFENAC [Concomitant]
     Active Substance: DICLOFENAC
  5. FISH OIL [Concomitant]
     Active Substance: FISH OIL
  6. FLUTICASONE PROPIONATE [Concomitant]
     Active Substance: FLUTICASONE PROPIONATE
  7. GAVILAX [Concomitant]
     Active Substance: POLYETHYLENE GLYCOL 3350
  8. ALBUTEROL\IPRATROPIUM [Concomitant]
     Active Substance: ALBUTEROL\IPRATROPIUM
  9. HYDROCHLOROTIAZID [Concomitant]
  10. LORATADINE [Concomitant]
     Active Substance: LORATADINE
  11. MONTELUKAST SODIUM [Concomitant]
     Active Substance: MONTELUKAST SODIUM
  12. NAPROXEN [Concomitant]
     Active Substance: NAPROXEN
  13. NIACIN [Concomitant]
     Active Substance: NIACIN
  14. OMEPRAZOLE [Concomitant]
     Active Substance: OMEPRAZOLE
  15. TRAZODONE [Concomitant]
     Active Substance: TRAZODONE HYDROCHLORIDE
  16. TRELEGY ELLIPTA [Concomitant]
     Active Substance: FLUTICASONE FUROATE\UMECLIDINIUM BROMIDE\VILANTEROL TRIFENATATE
  17. VENTOLIN HFA [Concomitant]
     Active Substance: ALBUTEROL SULFATE
  18. STOOL SOFTENER (DOCUSATE) [Concomitant]
     Active Substance: DOCUSATE
  19. VITAMINS [Concomitant]
     Active Substance: VITAMINS
  20. KLOR-CON M20 [Concomitant]
     Active Substance: POTASSIUM CHLORIDE
  21. CYCLOBENZAPRINE [Concomitant]
     Active Substance: CYCLOBENZAPRINE
  22. COENZYME Q10 [Concomitant]
     Active Substance: DIETARY SUPPLEMENT\UBIDECARENONE
  23. PROBIOTICS NOS [Concomitant]
     Active Substance: PROBIOTICS NOS

REACTIONS (9)
  - Asthma [Unknown]
  - Joint swelling [Unknown]
  - Arthralgia [Unknown]
  - Impaired quality of life [Unknown]
  - Eye irritation [Unknown]
  - Headache [Unknown]
  - Photophobia [Unknown]
  - Eye pain [Unknown]
  - Gastrooesophageal reflux disease [Unknown]

NARRATIVE: CASE EVENT DATE: 20220501
